FAERS Safety Report 6037283-0 (Version None)
Quarter: 2009Q1

REPORT INFORMATION
  Report Type: 
  Country: None (occurrence: None)
  Receive Date: 20090114
  Receipt Date: 20090109
  Transmission Date: 20090719
  Serious: Yes (Hospitalization)
  Sender: FDA-Public Use
  Company Number: B0552956A

PATIENT
  Age: 43 Year
  Sex: Female

DRUGS (2)
  1. LAMOTRIGINE [Suspect]
     Indication: DEPRESSION
  2. OXCARBAZEPINE [Suspect]

REACTIONS (10)
  - CHILLS [None]
  - DRUG HYPERSENSITIVITY [None]
  - DRUG INTERACTION [None]
  - FATIGUE [None]
  - HEPATIC ENZYME ABNORMAL [None]
  - HEPATITIS [None]
  - JAUNDICE [None]
  - NAUSEA [None]
  - RASH MACULAR [None]
  - WHITE BLOOD CELL COUNT DECREASED [None]
